FAERS Safety Report 9852024 (Version 1)
Quarter: 2013Q4

REPORT INFORMATION
  Report Type: Spontaneous
  Country: US (occurrence: None)
  Receive Date: 20131127
  Receipt Date: 20131127
  Transmission Date: 20140711
  Serious: No
  Sender: FDA-Public Use
  Company Number: 223189LEO

PATIENT
  Age: 62 Year
  Sex: Female

DRUGS (2)
  1. PICATO (INGENOL MEBUTATE) (0.05 %, GEL) [Suspect]
     Indication: ACTINIC KERATOSIS
     Dosage: 2 DF (2 IN 1 D)
     Route: 061
     Dates: start: 20130809, end: 20130810
  2. LEVULEN (AMINOLEVULINIC ACID) [Concomitant]

REACTIONS (9)
  - Application site erosion [None]
  - Application site vesicles [None]
  - Application site erythema [None]
  - Application site exfoliation [None]
  - Application site pain [None]
  - Application site pain [None]
  - Incorrect dose administered [None]
  - Drug administration error [None]
  - Incorrect drug administration duration [None]
